FAERS Safety Report 22073582 (Version 1)
Quarter: 2023Q1

REPORT INFORMATION
  Report Type: Spontaneous
  Country: US (occurrence: US)
  Receive Date: 20230308
  Receipt Date: 20230308
  Transmission Date: 20230418
  Serious: Yes (Hospitalization, Other)
  Sender: FDA-Public Use
  Company Number: US-MACLEODS PHARMACEUTICALS US LTD-MAC2023040059

PATIENT

DRUGS (3)
  1. TRAMADOL [Suspect]
     Active Substance: TRAMADOL
     Indication: Drug use disorder
     Dosage: 14 DOSAGE FORM, QD
     Route: 065
  2. TRAMADOL [Suspect]
     Active Substance: TRAMADOL
     Dosage: 12 DOSAGE FORM, QD
     Route: 065
  3. HYDROCODONE [Suspect]
     Active Substance: HYDROCODONE
     Indication: Drug use disorder
     Dosage: UNK
     Route: 065

REACTIONS (7)
  - Drug withdrawal syndrome [Recovered/Resolved]
  - Nausea [Recovered/Resolved]
  - Abdominal pain [Recovered/Resolved]
  - Chills [Recovered/Resolved]
  - Poor quality sleep [Recovered/Resolved]
  - Suicidal ideation [Recovered/Resolved]
  - Drug abuse [Recovered/Resolved]
